FAERS Safety Report 13695431 (Version 6)
Quarter: 2018Q2

REPORT INFORMATION
  Report Type: Report from Study
  Country: US (occurrence: US)
  Receive Date: 20170627
  Receipt Date: 20180510
  Transmission Date: 20180711
  Serious: Yes (Hospitalization)
  Sender: FDA-Public Use
  Company Number: US-ACTELION-A-NJ2017-151269

PATIENT
  Age: 34 Year
  Sex: Female

DRUGS (11)
  1. UPTRAVI [Suspect]
     Active Substance: SELEXIPAG
     Dosage: 800 UNK, UNK
     Route: 048
     Dates: start: 20170707
  2. AMBRISENTAN [Suspect]
     Active Substance: AMBRISENTAN
     Indication: PULMONARY ARTERIAL HYPERTENSION
     Dosage: 10 MG, UNK
     Route: 065
     Dates: start: 20170330
  3. UPTRAVI [Suspect]
     Active Substance: SELEXIPAG
     Indication: PULMONARY ARTERIAL HYPERTENSION
     Dosage: 200 MCG, BID
     Route: 048
     Dates: start: 20170329, end: 201706
  4. TRACLEER [Suspect]
     Active Substance: BOSENTAN
     Indication: PULMONARY ARTERIAL HYPERTENSION
     Dosage: 125 MG, BID
     Route: 048
     Dates: start: 20140318
  5. UPTRAVI [Suspect]
     Active Substance: SELEXIPAG
     Dosage: 200 MCG, BID
     Route: 048
     Dates: start: 20170317, end: 20170323
  6. TYVASO [Concomitant]
     Active Substance: TREPROSTINIL
     Dosage: 5 BREATHS
     Route: 065
     Dates: start: 20170622
  7. DIAMOX SEQUELS [Concomitant]
     Active Substance: ACETAZOLAMIDE
     Dosage: 500 MG, BID
  8. SPIRONOLACTONE. [Concomitant]
     Active Substance: SPIRONOLACTONE
     Dosage: 50 MG, QD
  9. UPTRAVI [Suspect]
     Active Substance: SELEXIPAG
     Dosage: 400 MCG, BID
     Route: 048
     Dates: start: 20170324, end: 20170328
  10. SILDENAFIL. [Concomitant]
     Active Substance: SILDENAFIL
     Dosage: 80 MG, TID
  11. TORSEMIDE. [Concomitant]
     Active Substance: TORSEMIDE
     Dosage: 20 MG, QD

REACTIONS (21)
  - Dyspnoea [Unknown]
  - Chest pain [Unknown]
  - Cardiac failure chronic [Recovering/Resolving]
  - Headache [Unknown]
  - Loss of consciousness [Recovered/Resolved]
  - Nausea [Recovered/Resolved]
  - Pain in extremity [Recovering/Resolving]
  - Haemoptysis [Recovered/Resolved]
  - Myalgia [Recovering/Resolving]
  - Drug intolerance [Unknown]
  - Cough [Recovered/Resolved]
  - Fluid retention [Recovered/Resolved]
  - Vomiting [Unknown]
  - Pneumonia [Recovered/Resolved]
  - Diet noncompliance [Unknown]
  - Pulmonary pain [Recovered/Resolved]
  - Flushing [Not Recovered/Not Resolved]
  - Condition aggravated [Recovered/Resolved]
  - Fluid overload [Recovered/Resolved]
  - Oedema [Unknown]
  - Swelling [Recovered/Resolved]

NARRATIVE: CASE EVENT DATE: 20170324
